FAERS Safety Report 15834837 (Version 2)
Quarter: 2020Q2

REPORT INFORMATION
  Report Type: Report from Study
  Country: None (occurrence: FR)
  Receive Date: 20190116
  Receipt Date: 20200605
  Transmission Date: 20200713
  Serious: Yes (Other)
  Sender: FDA-Public Use
  Company Number: FR-BAUSCH-BL-2019-001253

PATIENT
  Age: 78 Year
  Sex: Female

DRUGS (4)
  1. BRIMONIDINE [Suspect]
     Active Substance: BRIMONIDINE TARTRATE
     Indication: OPEN ANGLE GLAUCOMA
     Route: 061
  2. BENZALKONIUM CHLORIDE. [Suspect]
     Active Substance: BENZALKONIUM CHLORIDE
     Indication: OPEN ANGLE GLAUCOMA
     Route: 061
  3. LATANOPROST. [Suspect]
     Active Substance: LATANOPROST
     Indication: OPEN ANGLE GLAUCOMA
     Route: 061
  4. DORZOLAMIDE [Suspect]
     Active Substance: DORZOLAMIDE
     Indication: OPEN ANGLE GLAUCOMA
     Route: 061

REACTIONS (5)
  - Therapy non-responder [Unknown]
  - Keratic precipitates [Recovering/Resolving]
  - Meibomian gland dysfunction [Unknown]
  - Corneal neovascularisation [Recovering/Resolving]
  - Ocular hyperaemia [Recovering/Resolving]
